FAERS Safety Report 4713504-9 (Version None)
Quarter: 2005Q3

REPORT INFORMATION
  Report Type: 
  Country: None (occurrence: None)
  Receive Date: 20050712
  Receipt Date: 20050620
  Transmission Date: 20060218
  Serious: Yes (Death)
  Sender: FDA-Public Use
  Company Number: WAES 0501USA02714

PATIENT
  Age: 12 Year
  Sex: Male

DRUGS (9)
  1. ELSPAR [Suspect]
     Indication: ACUTE LYMPHOCYTIC LEUKAEMIA
     Dosage: IV
     Route: 042
     Dates: start: 19921201
  2. DECADRON [Concomitant]
  3. HYDROCORTONE [Concomitant]
  4. CYCLOPHOSPHAMIDE [Concomitant]
  5. CYTARABINE [Concomitant]
  6. ETOPOSIDE [Concomitant]
  7. HYDROXYUREA [Concomitant]
  8. METHOTREXATE [Concomitant]
  9. MITOXANTRONE [Concomitant]

REACTIONS (3)
  - BONE MARROW TRANSPLANT [None]
  - DRUG EFFECT DECREASED [None]
  - INTERSTITIAL LUNG DISEASE [None]
